FAERS Safety Report 9624761 (Version 2)
Quarter: 2013Q4

REPORT INFORMATION
  Report Type: Spontaneous
  Country: CA (occurrence: CA)
  Receive Date: 20131015
  Receipt Date: 20131015
  Transmission Date: 20140711
  Serious: Yes (Disabling)
  Sender: FDA-Public Use
  Company Number: CA-PFIZER INC-2013240172

PATIENT
  Age: 43 Year
  Sex: Male
  Weight: 92.5 kg

DRUGS (1)
  1. SOMAVERT [Suspect]
     Indication: ACROMEGALY
     Dosage: 20 MG, ONCE A WEEK
     Route: 058
     Dates: start: 20130619, end: 20130820

REACTIONS (2)
  - Pollakiuria [Recovered/Resolved]
  - Haematuria [Unknown]
